FAERS Safety Report 16290085 (Version 4)
Quarter: 2019Q2

REPORT INFORMATION
  Report Type: Report from Study
  Country: CO (occurrence: CO)
  Receive Date: 20190509
  Receipt Date: 20190613
  Transmission Date: 20190711
  Serious: Yes (Other)
  Sender: FDA-Public Use
  Company Number: CO-JNJFOC-20181110127

PATIENT
  Age: 62 Year
  Sex: Female
  Weight: 77 kg

DRUGS (2)
  1. GOLIMUMAB [Suspect]
     Active Substance: GOLIMUMAB
     Indication: RHEUMATOID ARTHRITIS
     Route: 058
     Dates: start: 20181123, end: 20190123
  2. GOLIMUMAB [Suspect]
     Active Substance: GOLIMUMAB
     Indication: RHEUMATOID ARTHRITIS
     Route: 058
     Dates: start: 20190610

REACTIONS (9)
  - Rheumatic fever [Not Recovered/Not Resolved]
  - Eye haemorrhage [Recovering/Resolving]
  - Inflammation [Not Recovered/Not Resolved]
  - Pain [Unknown]
  - Sinus congestion [Recovering/Resolving]
  - Pain in extremity [Not Recovered/Not Resolved]
  - Cough [Not Recovered/Not Resolved]
  - Kidney infection [Recovered/Resolved]
  - Headache [Recovering/Resolving]

NARRATIVE: CASE EVENT DATE: 201811
